FAERS Safety Report 14513076 (Version 1)
Quarter: 2018Q1

REPORT INFORMATION
  Report Type: Spontaneous
  Country: US (occurrence: US)
  Receive Date: 20180209
  Receipt Date: 20180209
  Transmission Date: 20180509
  Serious: No
  Sender: FDA-Public Use
  Company Number: US-ALLERGAN-1726516US

PATIENT
  Sex: Female

DRUGS (2)
  1. RESTASIS [Suspect]
     Active Substance: CYCLOSPORINE
     Indication: DRY EYE
     Dosage: UNK, TWICE A DAY EVERY 12 HOURS
     Route: 047
  2. TEARS [Concomitant]
     Active Substance: LANOLIN\PARAFFIN
     Indication: DRY EYE
     Dosage: UNK, FIVE TIMES A DAY

REACTIONS (2)
  - Inappropriate schedule of drug administration [Unknown]
  - Eye irritation [Unknown]
